FAERS Safety Report 7196213-9 (Version None)
Quarter: 2010Q4

REPORT INFORMATION
  Report Type: 
  Country: None (occurrence: None)
  Receive Date: 20101223
  Receipt Date: 20101018
  Transmission Date: 20110411
  Serious: No
  Sender: FDA-Public Use
  Company Number: US-AMGEN-USASP2010001514

PATIENT

DRUGS (9)
  1. ENBREL [Suspect]
     Indication: PRODUCT USED FOR UNKNOWN INDICATION
     Dosage: 50 MG, QWK
     Route: 058
  2. PROTONIX [Concomitant]
     Dosage: 20 MG, UNK
  3. XANAX [Concomitant]
     Dosage: 1 MG, UNK
  4. PLAQUENIL [Concomitant]
     Dosage: 200 MG, UNK
  5. TOPAMAX [Concomitant]
     Dosage: 100 MG, UNK
  6. ZOLOFT [Concomitant]
     Dosage: 25 MG, UNK
  7. VICODIN [Concomitant]
     Dosage: 500 MG, UNK
  8. ECOTRIN 650 [Concomitant]
     Dosage: 1 MG, UNK
  9. CALCIUM +D [Concomitant]
     Dosage: 10 MG, UNK

REACTIONS (2)
  - INJECTION SITE HAEMATOMA [None]
  - URINARY TRACT INFECTION [None]
